FAERS Safety Report 13288973 (Version 1)
Quarter: 2017Q1

REPORT INFORMATION
  Report Type: Spontaneous
  Country: TR (occurrence: TR)
  Receive Date: 20170302
  Receipt Date: 20170302
  Transmission Date: 20170428
  Serious: Yes (Hospitalization)
  Sender: FDA-Public Use
  Company Number: TR-UCBSA-2017007812

PATIENT
  Age: 24 Year
  Sex: Female

DRUGS (5)
  1. BENVIDA [Suspect]
     Active Substance: LACOSAMIDE
     Indication: EPILEPSY
     Dosage: 100 MG 2X1
     Route: 048
  2. LAMICTAL [Concomitant]
     Active Substance: LAMOTRIGINE
     Indication: PRODUCT USED FOR UNKNOWN INDICATION
     Dosage: 50 MG 2X 1
  3. LAMICTAL [Concomitant]
     Active Substance: LAMOTRIGINE
     Dosage: 100 MG 2 X1
  4. BENVIDA [Suspect]
     Active Substance: LACOSAMIDE
     Dosage: 50MG 1X1
     Route: 048
  5. BENVIDA [Suspect]
     Active Substance: LACOSAMIDE
     Dosage: 25 MG 1X1 (HALF TABLET)
     Route: 048

REACTIONS (4)
  - Pressure of speech [Recovered/Resolved]
  - Off label use [Unknown]
  - Eye movement disorder [Recovered/Resolved]
  - Tremor [Recovered/Resolved]
